FAERS Safety Report 25147664 (Version 1)
Quarter: 2025Q2

REPORT INFORMATION
  Report Type: Spontaneous
  Country: US (occurrence: US)
  Receive Date: 20250402
  Receipt Date: 20250402
  Transmission Date: 20250717
  Serious: Yes (Death)
  Sender: ROCHE
  Company Number: US-ROCHE-10000244187

PATIENT
  Sex: Male

DRUGS (3)
  1. ZELBORAF [Suspect]
     Active Substance: VEMURAFENIB
     Indication: Malignant melanoma
     Route: 048
     Dates: start: 202408
  2. COTELLIC [Suspect]
     Active Substance: COBIMETINIB FUMARATE
     Indication: Malignant melanoma
     Dosage: ON DAY 1 THRU 21 EVERY 28 DAYS
     Route: 048
     Dates: start: 202408
  3. TEMOZOLOMIDE [Concomitant]
     Active Substance: TEMOZOLOMIDE

REACTIONS (1)
  - Death [Fatal]
